FAERS Safety Report 16640318 (Version 5)
Quarter: 2019Q4

REPORT INFORMATION
  Report Type: Report from Study
  Country: JP (occurrence: JP)
  Receive Date: 20190728
  Receipt Date: 20191208
  Transmission Date: 20200122
  Serious: Yes (Death, Life-Threatening, Other)
  Sender: FDA-Public Use
  Company Number: JP-BEH-2019104967

PATIENT
  Age: 72 Year
  Sex: Male
  Weight: 63 kg

DRUGS (6)
  1. BERIPLEX P/N [Suspect]
     Active Substance: COAGULATION FACTOR IX HUMAN\COAGULATION FACTOR VII HUMAN\COAGULATION FACTOR X HUMAN\PROTEIN C\PROTEIN S HUMAN\PROTHROMBIN
     Indication: HAEMORRHAGE
     Dosage: 1500 INTERNATIONAL UNIT, SINGLE
     Route: 042
     Dates: start: 20180518
  2. BERIPLEX P/N [Suspect]
     Active Substance: COAGULATION FACTOR IX HUMAN\COAGULATION FACTOR VII HUMAN\COAGULATION FACTOR X HUMAN\PROTEIN C\PROTEIN S HUMAN\PROTHROMBIN
     Indication: HAEMORRHAGE
     Dosage: 1500 INTERNATIONAL UNIT, SINGLE
     Route: 042
     Dates: start: 20180518
  3. WARFARIN [Concomitant]
     Active Substance: WARFARIN
     Indication: ARRHYTHMIA PROPHYLAXIS
     Dosage: 3 MILLIGRAM, QD
     Route: 048
     Dates: start: 20180508, end: 20180517
  4. WARFARIN [Concomitant]
     Active Substance: WARFARIN
     Indication: PROPHYLAXIS
  5. CALCICOL [Concomitant]
     Active Substance: CALCIUM GLUCONATE
     Dosage: UNK
     Route: 065
     Dates: start: 20180518, end: 20180518
  6. WARFARIN [Concomitant]
     Active Substance: WARFARIN
     Indication: AORTIC ANASTOMOSIS

REACTIONS (10)
  - Acute respiratory distress syndrome [Fatal]
  - Pulmonary haemorrhage [Not Recovered/Not Resolved]
  - Abdominal adhesions [Not Recovered/Not Resolved]
  - Pleural effusion [Not Recovered/Not Resolved]
  - Retroperitoneal haemorrhage [Recovered/Resolved]
  - Artery dissection [Not Recovered/Not Resolved]
  - Small intestine ulcer [Not Recovered/Not Resolved]
  - Ascites [Not Recovered/Not Resolved]
  - Prostatic haemorrhage [Unknown]
  - Large intestinal ulcer [Unknown]

NARRATIVE: CASE EVENT DATE: 20180518
